FAERS Safety Report 8147329-1 (Version None)
Quarter: 2012Q1

REPORT INFORMATION
  Report Type: 
  Country: None (occurrence: None)
  Receive Date: 20120218
  Receipt Date: 20110203
  Transmission Date: 20120608
  Serious: No
  Sender: FDA-Public Use
  Company Number: US-ALLERGAN-1101592US

PATIENT
  Age: 40 Year
  Sex: Female

DRUGS (2)
  1. BOTOX COSMETIC [Suspect]
     Dosage: 2 UNITS, SINGLE
     Route: 030
     Dates: start: 20101228, end: 20101228
  2. BOTOX COSMETIC [Suspect]
     Indication: SKIN WRINKLING
     Dosage: 20 UNITS, SINGLE
     Route: 030
     Dates: start: 20101223, end: 20101223

REACTIONS (8)
  - FACIAL PAIN [None]
  - LYMPHATIC DISORDER [None]
  - SWELLING FACE [None]
  - PYREXIA [None]
  - DRUG INEFFECTIVE [None]
  - SINUSITIS [None]
  - ERYTHEMA [None]
  - SENSATION OF PRESSURE [None]
